FAERS Safety Report 8250840-6 (Version None)
Quarter: 2012Q2

REPORT INFORMATION
  Report Type: 
  Country: None (occurrence: None)
  Receive Date: 20120402
  Receipt Date: 20120322
  Transmission Date: 20120825
  Serious: Yes (Hospitalization)
  Sender: FDA-Public Use
  Company Number: PHHO2012AT003972

PATIENT
  Sex: Male
  Weight: 103.5 kg

DRUGS (7)
  1. TORSEMIDE [Concomitant]
     Indication: CARDIAC FAILURE CHRONIC
     Dosage: 20 MG, QD
     Dates: start: 20100527
  2. UROSIN [Concomitant]
     Indication: HYPERURICAEMIA
     Dosage: 300 MG, QD
     Dates: start: 19980101
  3. ALISKIREN [Suspect]
     Indication: CARDIAC FAILURE CHRONIC
     Dosage: UNK
     Route: 048
     Dates: start: 20110622, end: 20120220
  4. MARCUMAR [Concomitant]
     Indication: ATRIAL FIBRILLATION
     Dosage: UNK
     Dates: start: 20081017
  5. HYDROCHLOROTHIAZIDE [Concomitant]
     Indication: CARDIAC FAILURE CHRONIC
     Dosage: 25 MG, QD
     Dates: start: 20110504
  6. BISOPROLOL FUMARATE [Concomitant]
     Indication: CARDIAC FAILURE CHRONIC
     Dosage: 5 MG, QD
     Dates: start: 20081017
  7. SPIRONOLACTONE [Concomitant]
     Indication: CARDIAC FAILURE CHRONIC
     Dosage: 50 MG, QD
     Dates: start: 20081017

REACTIONS (1)
  - RENAL CELL CARCINOMA [None]
